FAERS Safety Report 17688175 (Version 2)
Quarter: 2020Q3

REPORT INFORMATION
  Report Type: Spontaneous
  Country: CH (occurrence: CH)
  Receive Date: 20200421
  Receipt Date: 20200729
  Transmission Date: 20201102
  Serious: Yes (Disabling, Other)
  Sender: FDA-Public Use
  Company Number: CH-AMERICAN REGENT INC-2020000894

PATIENT
  Sex: Male

DRUGS (13)
  1. DEXILANT [Concomitant]
     Active Substance: DEXLANSOPRAZOLE
     Dosage: 60 MG (60 MG,1 IN THE MORNING)
     Route: 048
     Dates: end: 2020
  2. VEDOLIZUMAB [Concomitant]
     Active Substance: VEDOLIZUMAB
     Indication: PRODUCT USED FOR UNKNOWN INDICATION
     Dosage: 1 DOSAGE FORM, 1 IN 8 WK
     Route: 042
     Dates: start: 2018
  3. CALCIMAGON?D3 [Concomitant]
     Active Substance: CALCIUM\CHOLECALCIFEROL
     Indication: PRODUCT USED FOR UNKNOWN INDICATION
     Dosage: 500MG / 800 IE 1?0?0 (1 DOSAGE FORM, EVERY MORNING)
     Route: 048
     Dates: start: 2018
  4. FERINJECT [Suspect]
     Active Substance: FERRIC CARBOXYMALTOSE
     Indication: IRON DEFICIENCY ANAEMIA
     Dosage: 1000 MILLIGRAM, 1 CYCLICAL
     Dates: start: 201301
  5. FERINJECT [Suspect]
     Active Substance: FERRIC CARBOXYMALTOSE
     Dosage: UNK
     Dates: start: 20200424, end: 20200501
  6. SODIUM PHOSPHATE [Concomitant]
     Active Substance: SODIUM PHOSPHATE
     Indication: PRODUCT USED FOR UNKNOWN INDICATION
     Dosage: 3 DOSAGE FORM, 3 IN 1 D (3 IN THE MORNING, 3 AT LUNCHTIME, 3 IN THE EVENING)
     Route: 048
  7. ACIDUM FOLICUM STREULI [Concomitant]
     Active Substance: FOLIC ACID
     Indication: PRODUCT USED FOR UNKNOWN INDICATION
     Dosage: 5 MILLIGRAM, EVERY MORNING
     Route: 048
     Dates: start: 2018
  8. NOVALGIN (METAMIZOLE SODIUM) [Concomitant]
     Active Substance: METAMIZOLE SODIUM
     Indication: PRODUCT USED FOR UNKNOWN INDICATION
     Dosage: (500 MG, 3 IN 1 D) 1 IN THE MORNING, 1 AT LUNCHTIME, 1 IN THE EVENING
     Route: 048
     Dates: start: 2018, end: 2020
  9. SALOFALK                           /00747601/ [Concomitant]
     Active Substance: MESALAMINE
     Indication: PRODUCT USED FOR UNKNOWN INDICATION
     Dosage: 4.5 GRAM, EVERY MORNING
     Route: 048
  10. FERINJECT [Suspect]
     Active Substance: FERRIC CARBOXYMALTOSE
     Dosage: 1000 MILLIGRAM
     Dates: start: 20190709
  11. CARVEDILOL. [Concomitant]
     Active Substance: CARVEDILOL
     Indication: PRODUCT USED FOR UNKNOWN INDICATION
     Dosage: 12.5 MG (6.25 MG, 1 IN THE MORNING AND 1 IN THE EVENING)
     Route: 048
     Dates: start: 2018
  12. DEXILANT [Concomitant]
     Active Substance: DEXLANSOPRAZOLE
     Indication: PRODUCT USED FOR UNKNOWN INDICATION
     Dosage: 120 MG (60 MG, 1 IN THE MORNING AND 1 IN THE EVENING)
     Route: 048
     Dates: start: 20190523, end: 20190708
  13. SYMBICORT [Concomitant]
     Active Substance: BUDESONIDE\FORMOTEROL FUMARATE DIHYDRATE
     Indication: PRODUCT USED FOR UNKNOWN INDICATION
     Dosage: 200/6 (1 DOSAGE FORM, IN THE MORNING)

REACTIONS (6)
  - Stress fracture [Not Recovered/Not Resolved]
  - Osteomalacia [Not Recovered/Not Resolved]
  - Fracture [Not Recovered/Not Resolved]
  - Bone metabolism disorder [Unknown]
  - Urine phosphorus increased [Unknown]
  - Hypophosphataemia [Not Recovered/Not Resolved]

NARRATIVE: CASE EVENT DATE: 2018
